FAERS Safety Report 20844317 (Version 1)
Quarter: 2022Q2

REPORT INFORMATION
  Report Type: Spontaneous
  Country: JP (occurrence: JP)
  Receive Date: 20220518
  Receipt Date: 20220518
  Transmission Date: 20220721
  Serious: Yes (Other)
  Sender: FDA-Public Use
  Company Number: JP-NOVARTISPH-NVSJ2022JP090227

PATIENT

DRUGS (1)
  1. CYCLOSPORINE [Suspect]
     Active Substance: CYCLOSPORINE
     Indication: Nephrotic syndrome
     Dosage: ADMINISTERED BY CONTINUOUS DRIP INFUSION FOR 24 HOURS
     Route: 041

REACTIONS (2)
  - Sudden hearing loss [Unknown]
  - Headache [Unknown]
